FAERS Safety Report 9282299 (Version 2)
Quarter: 2013Q3

REPORT INFORMATION
  Report Type: Report from Study
  Country: US (occurrence: US)
  Receive Date: 20130510
  Receipt Date: 20130920
  Transmission Date: 20140515
  Serious: Yes (Death, Hospitalization)
  Sender: FDA-Public Use
  Company Number: US-BAYER-2013-035973

PATIENT
  Age: 71 Year
  Sex: Male

DRUGS (3)
  1. STIVARGA [Suspect]
     Indication: RECTAL CANCER
     Dosage: 80 MG, QD X 21 DAYS
     Route: 048
     Dates: start: 20130314, end: 201303
  2. STIVARGA [Suspect]
     Indication: RECTAL CANCER
     Dosage: 160 MG, QD (4 TABLETS DAILY)
     Route: 048
     Dates: start: 20130317, end: 20130429
  3. STIVARGA [Suspect]
     Indication: RECTAL CANCER
     Dosage: 80 MG, QD X 21 DAYS
     Route: 048
     Dates: start: 2013, end: 20130902

REACTIONS (9)
  - Metastases to central nervous system [Fatal]
  - Cerebral haemorrhage [Fatal]
  - Hypertension [Recovered/Resolved]
  - Loss of consciousness [Recovered/Resolved]
  - Diarrhoea [Not Recovered/Not Resolved]
  - Diarrhoea [Recovered/Resolved]
  - Nausea [Recovered/Resolved]
  - Vomiting [Recovered/Resolved]
  - Weight decreased [Not Recovered/Not Resolved]
